FAERS Safety Report 15635203 (Version 1)
Quarter: 2018Q4

REPORT INFORMATION
  Report Type: Spontaneous
  Country: PT (occurrence: PT)
  Receive Date: 20181120
  Receipt Date: 20181120
  Transmission Date: 20190205
  Serious: Yes (Other)
  Sender: FDA-Public Use
  Company Number: PT-TEVA-2018-PT-976384

PATIENT
  Age: 41 Year
  Sex: Male

DRUGS (4)
  1. SODOLAC [Suspect]
     Active Substance: ETODOLAC
     Indication: MYALGIA
     Route: 048
     Dates: start: 20181020
  2. METAMIZOL CINFA [Suspect]
     Active Substance: METAMIZOLE
     Indication: MYALGIA
     Route: 048
     Dates: start: 20181020
  3. TIZANIDINA TEVA [Suspect]
     Active Substance: TIZANIDINE
     Indication: MYALGIA
     Route: 048
     Dates: start: 20181020
  4. PANTOPRAZOL KRKA [Suspect]
     Active Substance: PANTOPRAZOLE
     Indication: PROPHYLAXIS AGAINST GASTROINTESTINAL ULCER
     Route: 048
     Dates: start: 20181020

REACTIONS (1)
  - Rash erythematous [Recovered/Resolved]

NARRATIVE: CASE EVENT DATE: 20181020
